FAERS Safety Report 6699987-6 (Version None)
Quarter: 2010Q2

REPORT INFORMATION
  Report Type: 
  Country: None (occurrence: None)
  Receive Date: 20100428
  Receipt Date: 20100422
  Transmission Date: 20101027
  Serious: Yes (Death, Hospitalization, Other)
  Sender: FDA-Public Use
  Company Number: PHEH2009US18491

PATIENT
  Sex: Female

DRUGS (15)
  1. GLEEVEC [Suspect]
     Indication: CHRONIC MYELOID LEUKAEMIA
     Dosage: 400 MG/DAY
     Route: 048
     Dates: start: 20030411, end: 20091201
  2. METOCLOPRAMIDE HYDROCHLORIDE [Concomitant]
     Dosage: 10 MG, QD
  3. NEXIUM [Concomitant]
     Dosage: 40 MG, BID
  4. CARAFATE [Concomitant]
     Dosage: 1 G, QD
  5. K-DUR [Concomitant]
  6. COREG [Concomitant]
     Dosage: 25 MG, QD
     Route: 048
  7. COREG [Concomitant]
     Dosage: 6.25 MG, QD
     Route: 048
  8. LISINOPRIL [Concomitant]
     Dosage: 10 MG/DAY
  9. NOVOLOG [Concomitant]
     Dosage: 135 UNITS/DAY (65 UNITS IN THE MORNING AND 60 UNITS IN THE EVENING)
     Route: 058
  10. QUESTRAN [Concomitant]
     Dosage: 4 MG, BID
  11. CRESTOR [Concomitant]
     Dosage: 20 MG/DAY
  12. MIRALAX [Concomitant]
     Dosage: 1 DF, BID (1 PACK BID)
  13. LEXAPRO [Concomitant]
     Dosage: 20 MG/DAY
  14. FLEXERIL [Concomitant]
     Dosage: 2 MG, QHS
  15. NITROGLYCERIN [Concomitant]
     Dosage: UNK, PRN

REACTIONS (17)
  - ARTERIAL CATHETERISATION [None]
  - ATRIOVENTRICULAR BLOCK COMPLETE [None]
  - CARDIO-RESPIRATORY ARREST [None]
  - CHEST PAIN [None]
  - CORONARY ARTERY OCCLUSION [None]
  - DISCOMFORT [None]
  - DYSPNOEA [None]
  - ENDOTRACHEAL INTUBATION [None]
  - GASTRITIS [None]
  - GASTROINTESTINAL HAEMORRHAGE [None]
  - HEADACHE [None]
  - HYPOTENSION [None]
  - MYOCARDIAL INFARCTION [None]
  - NAUSEA [None]
  - PRODUCTIVE COUGH [None]
  - RESPIRATORY DISTRESS [None]
  - WHEEZING [None]
